FAERS Safety Report 6751070-7 (Version None)
Quarter: 2010Q2

REPORT INFORMATION
  Report Type: 
  Country: None (occurrence: None)
  Receive Date: 20100602
  Receipt Date: 20100525
  Transmission Date: 20101027
  Serious: Yes (Hospitalization)
  Sender: FDA-Public Use
  Company Number: PHHY2010AU28463

PATIENT
  Age: 64 Year
  Sex: Male

DRUGS (8)
  1. OCTREOTIDE ACETATE [Suspect]
     Indication: INSULINOMA
     Dosage: UPTO 500 MICRO G/DAY IN THREE DIVIDED DOSES
     Route: 058
  2. OCTREOTIDE ACETATE [Suspect]
     Indication: HYPOGLYCAEMIC SEIZURE
     Dosage: 3000 MG DAILY
     Route: 058
  3. DIAZOXIDE [Concomitant]
     Indication: HYPOGLYCAEMIA
     Dosage: UP TO 200 MGX3 /DAY
  4. PREDNISOLONE [Concomitant]
     Dosage: 40 MG DAILY
  5. AMINO ACIDS NOS [Concomitant]
  6. EVEROLIMUS [Concomitant]
     Dosage: 2.5 MGX2 / DAY
  7. CAPECITABINE [Concomitant]
     Dosage: 1.5 G, BID,  SIX CYCLES OF 14 DAYS
  8. TEMOZOLOMIDE [Concomitant]
     Dosage: 400 MG, DAILY

REACTIONS (1)
  - HYPOGLYCAEMIC SEIZURE [None]
